FAERS Safety Report 24025555 (Version 1)
Quarter: 2024Q2

REPORT INFORMATION
  Report Type: Spontaneous
  Country: FI (occurrence: FI)
  Receive Date: 20240628
  Receipt Date: 20240628
  Transmission Date: 20240716
  Serious: No
  Sender: FDA-Public Use
  Company Number: FI-ROCHE-3412523

PATIENT
  Age: 48 Year
  Sex: Female

DRUGS (4)
  1. PHESGO [Suspect]
     Active Substance: HYALURONIDASE-ZZXF\PERTUZUMAB\TRASTUZUMAB
     Indication: Breast cancer
     Route: 065
  2. CAPECITABINE [Concomitant]
     Active Substance: CAPECITABINE
     Indication: Breast cancer
     Dates: start: 202104
  3. DOCETAXEL [Concomitant]
     Active Substance: DOCETAXEL\DOCETAXEL ANHYDROUS
     Indication: Breast cancer
     Dates: start: 202104
  4. CAPECITABINE\OXALIPLATIN [Concomitant]
     Active Substance: CAPECITABINE\OXALIPLATIN
     Indication: Breast cancer
     Dates: start: 202110

REACTIONS (2)
  - Off label use [Unknown]
  - No adverse event [Unknown]
